FAERS Safety Report 6682759-6 (Version None)
Quarter: 2010Q2

REPORT INFORMATION
  Report Type: 
  Country: None (occurrence: None)
  Receive Date: 20100415
  Receipt Date: 20100409
  Transmission Date: 20101027
  Serious: Yes (Other)
  Sender: FDA-Public Use
  Company Number: JP-EISAI INC.-E2020-06353-SPO-JP

PATIENT
  Age: 80 Year
  Sex: Male
  Weight: 40 kg

DRUGS (4)
  1. ARICEPT [Suspect]
     Route: 048
     Dates: start: 20090602, end: 20090622
  2. ARICEPT [Suspect]
     Route: 048
     Dates: start: 20090623, end: 20091030
  3. SERMION [Concomitant]
     Route: 048
     Dates: start: 20090602
  4. GRAMALIL [Concomitant]
     Route: 048
     Dates: start: 20090519

REACTIONS (1)
  - THROMBOCYTOPENIA [None]
